FAERS Safety Report 7363987-3 (Version None)
Quarter: 2011Q1

REPORT INFORMATION
  Report Type: 
  Country: None (occurrence: None)
  Receive Date: 20110321
  Receipt Date: 20101222
  Transmission Date: 20110831
  Serious: Yes (Death)
  Sender: FDA-Public Use
  Company Number: US-TYCO HEALTHCARE/MALLINCKRODT-T201002464

PATIENT
  Age: 23 Year
  Sex: Female

DRUGS (3)
  1. METHADOSE [Suspect]
     Dosage: UNK
  2. METAMFETAMINE [Suspect]
  3. OXYCODONE [Suspect]
     Dosage: UNK

REACTIONS (1)
  - TOXICITY TO VARIOUS AGENTS [None]
